FAERS Safety Report 9310366 (Version 1)
Quarter: 2013Q2

REPORT INFORMATION
  Report Type: Spontaneous
  Country: US (occurrence: US)
  Receive Date: 20130527
  Receipt Date: 20130527
  Transmission Date: 20140414
  Serious: Yes (Other)
  Sender: FDA-Public Use
  Company Number: US-BRISTOL-MYERS SQUIBB COMPANY-18911354

PATIENT
  Sex: 0

DRUGS (1)
  1. BYETTA [Suspect]
     Dates: start: 2006, end: 2010

REACTIONS (1)
  - Pancreatic carcinoma [Unknown]
